FAERS Safety Report 5315899-4 (Version None)
Quarter: 2007Q2

REPORT INFORMATION
  Report Type: 
  Country: None (occurrence: None)
  Receive Date: 20070503
  Receipt Date: 20070424
  Transmission Date: 20071010
  Serious: Yes (Death, Other)
  Sender: FDA-Public Use
  Company Number: US-PFIZER INC-2007033383

PATIENT
  Sex: Male

DRUGS (2)
  1. CELEBREX [Suspect]
     Route: 048
  2. VIOXX [Suspect]
     Route: 048
     Dates: start: 19980101, end: 20020401

REACTIONS (3)
  - CARDIOVASCULAR DISORDER [None]
  - ISCHAEMIC STROKE [None]
  - MYOCARDIAL INFARCTION [None]
